FAERS Safety Report 4381584-9 (Version None)
Quarter: 2004Q2

REPORT INFORMATION
  Report Type: 
  Country: None (occurrence: None)
  Receive Date: 20040614
  Receipt Date: 20031006
  Transmission Date: 20050107
  Serious: Yes (Life-Threatening, Disabling)
  Sender: FDA-Public Use
  Company Number: WAES 0310USA00914

PATIENT
  Age: 67 Year
  Sex: Male

DRUGS (8)
  1. COZAAR [Suspect]
     Indication: HYPERCHOLESTEROLAEMIA
     Dosage: UNK/DAILY/PO; 25 MG/DAILY/PO
     Route: 048
     Dates: start: 20030801
  2. COZAAR [Suspect]
     Indication: HYPERTENSION
     Dosage: UNK/DAILY/PO; 25 MG/DAILY/PO
     Route: 048
     Dates: start: 20030801
  3. COZAAR [Suspect]
     Indication: HYPERCHOLESTEROLAEMIA
     Dosage: UNK/DAILY/PO; 25 MG/DAILY/PO
     Route: 048
     Dates: start: 20030815
  4. COZAAR [Suspect]
     Indication: HYPERTENSION
     Dosage: UNK/DAILY/PO; 25 MG/DAILY/PO
     Route: 048
     Dates: start: 20030815
  5. CELLCEPT [Concomitant]
  6. NEORAL [Concomitant]
  7. TRIMETHOPRIM [Concomitant]
  8. [THERAPY UNSPECIFIED] [Concomitant]

REACTIONS (4)
  - BLOOD POTASSIUM INCREASED [None]
  - DIARRHOEA [None]
  - MEDICATION ERROR [None]
  - OFF LABEL USE [None]
